FAERS Safety Report 4411119-3 (Version None)
Quarter: 2004Q2

REPORT INFORMATION
  Report Type: 
  Country: None (occurrence: None)
  Receive Date: 20040630
  Receipt Date: 20040422
  Transmission Date: 20050107
  Serious: No
  Sender: FDA-Public Use
  Company Number: 04P-163-0258400-00

PATIENT
  Age: 87 Year
  Sex: Female

DRUGS (9)
  1. HUMIRA [Suspect]
     Indication: RHEUMATOID ARTHRITIS
     Dosage: 40 MG, 1 IN 2 WK, SUBCUTANEOUS
     Route: 058
     Dates: start: 20040201
  2. METOPROLOL [Concomitant]
  3. FOLIC ACID [Concomitant]
  4. CLOPIDOGREL BISULFATE [Concomitant]
  5. PREDNISONE TAB [Concomitant]
  6. METHOTREXATE [Concomitant]
  7. ALENDRONATE SODIUM [Concomitant]
  8. ERGOCALCIFEROL [Concomitant]
  9. CEFADROXIL [Concomitant]

REACTIONS (2)
  - ARTHRALGIA [None]
  - INJECTION SITE BURNING [None]
